FAERS Safety Report 7406709-X (Version None)
Quarter: 2011Q2

REPORT INFORMATION
  Report Type: 
  Country: None (occurrence: None)
  Receive Date: 20110411
  Receipt Date: 20110331
  Transmission Date: 20111010
  Serious: Yes (Other)
  Sender: FDA-Public Use
  Company Number: US-ASTRAZENECA-2011SE15658

PATIENT
  Age: 42 Year
  Sex: Female

DRUGS (3)
  1. TOPAMAX [Concomitant]
  2. DEPAKOTE [Concomitant]
  3. NEXIUM [Suspect]
     Route: 048

REACTIONS (3)
  - AXILLARY MASS [None]
  - CONVULSION [None]
  - BREAST CANCER [None]
